FAERS Safety Report 9581857 (Version 1)
Quarter: 2013Q4

REPORT INFORMATION
  Report Type: Spontaneous
  Country: US (occurrence: US)
  Receive Date: 20131002
  Receipt Date: 20131002
  Transmission Date: 20140711
  Serious: Yes (Other)
  Sender: FDA-Public Use
  Company Number: CHPA2013US014882

PATIENT
  Age: 75 Year
  Sex: Female

DRUGS (21)
  1. EXCEDRIN EXTRA STRENGTH [Suspect]
     Indication: HEADACHE
     Dosage: 2 DF, PRN
     Route: 048
  2. EXCEDRIN EXTRA STRENGTH [Suspect]
     Indication: LYMPHADENOPATHY
  3. EXCEDRIN EXTRA STRENGTH [Suspect]
     Indication: HYPERSENSITIVITY
  4. EXCEDRIN EXTRA STRENGTH [Suspect]
     Indication: OFF LABEL USE
  5. EXCEDRIN MIGRAINE [Suspect]
     Indication: MIGRAINE
     Dosage: UNK, UNK
  6. EXCEDRIN MIGRAINE [Suspect]
     Indication: HEADACHE
  7. EXCEDRIN MIGRAINE [Suspect]
     Indication: LYMPHADENOPATHY
  8. EXCEDRIN MIGRAINE [Suspect]
     Indication: HYPERSENSITIVITY
  9. EXCEDRIN MIGRAINE [Suspect]
     Indication: OFF LABEL USE
  10. IBUPROFEN [Suspect]
     Indication: HEADACHE
     Dosage: 2 DF, PRN
  11. IBUPROFEN [Suspect]
     Indication: LYMPHADENOPATHY
  12. IBUPROFEN [Suspect]
     Indication: HYPERSENSITIVITY
  13. IBUPROFEN [Suspect]
     Indication: OFF LABEL USE
  14. ALEVE [Concomitant]
     Indication: MYALGIA
     Dosage: UNK, PRN
  15. ALEVE [Concomitant]
     Indication: PAIN
  16. MULTIPLE VITAMINS [Concomitant]
  17. CALCIUM +VIT D [Concomitant]
  18. CO Q10 [Concomitant]
  19. VITAMIN D3 [Concomitant]
  20. OMEGA 3 [Concomitant]
  21. SYMBICORT [Concomitant]
     Dosage: 160/4.5 MG, UNK

REACTIONS (4)
  - Bone loss [Not Recovered/Not Resolved]
  - Therapeutic response unexpected [Unknown]
  - Incorrect dose administered [Unknown]
  - Drug ineffective [Unknown]
